FAERS Safety Report 6846976-4 (Version None)
Quarter: 2010Q3

REPORT INFORMATION
  Report Type: 
  Country: None (occurrence: None)
  Receive Date: 20100713
  Receipt Date: 20100620
  Transmission Date: 20110219
  Serious: Yes (Other)
  Sender: FDA-Public Use
  Company Number: FR-1182196

PATIENT
  Age: 63 Year
  Sex: Male

DRUGS (3)
  1. CILOXAN [Suspect]
     Indication: CONJUNCTIVITIS
     Dosage: QPM, OPHTHALMIC
     Route: 047
     Dates: start: 20100519, end: 20100521
  2. CILOXAN [Suspect]
     Indication: CORNEAL EROSION
     Dosage: QPM, OPHTHALMIC
     Route: 047
     Dates: start: 20100519, end: 20100521
  3. INDOBIOTIC  (INDOBIOTIC ) [Concomitant]

REACTIONS (7)
  - BLEPHARITIS [None]
  - CONJUNCTIVITIS [None]
  - CORNEAL OPACITY [None]
  - DRUG TOXICITY [None]
  - INFLAMMATION OF LACRIMAL PASSAGE [None]
  - OCULAR HYPERAEMIA [None]
  - VISION BLURRED [None]
